FAERS Safety Report 25999629 (Version 3)
Quarter: 2025Q4

REPORT INFORMATION
  Report Type: Spontaneous
  Country: EU (occurrence: EU)
  Receive Date: 20251105
  Receipt Date: 20251223
  Transmission Date: 20260118
  Serious: Yes (Other)
  Sender: AMICUS THERAPEUTICS
  Company Number: EU-AMICUS THERAPEUTICS, INC.-AMI_4456

PATIENT
  Age: 58 Year
  Sex: Female

DRUGS (4)
  1. POMBILITI [Suspect]
     Active Substance: CIPAGLUCOSIDASE ALFA-ATGA
     Indication: Glycogen storage disease type II
     Dosage: 1300 MILLIGRAM, Q2WK
     Route: 042
     Dates: start: 20250717, end: 20251023
  2. OPFOLDA [Suspect]
     Active Substance: MIGLUSTAT
     Indication: Glycogen storage disease type II
     Dosage: 260 MILLIGRAM, Q2WK
     Route: 048
     Dates: start: 20250717, end: 20251023
  3. PLAVIX [Concomitant]
     Active Substance: CLOPIDOGREL BISULFATE
     Indication: Product used for unknown indication
     Dosage: UNK
     Route: 065
  4. EZETIMIBE [Concomitant]
     Active Substance: EZETIMIBE
     Indication: Product used for unknown indication
     Dosage: UNK
     Route: 065

REACTIONS (10)
  - Throat tightness [Recovered/Resolved]
  - Rash vesicular [Recovered/Resolved]
  - Dyspepsia [Recovered/Resolved]
  - Oedema peripheral [Recovered/Resolved]
  - Tremor [Recovered/Resolved]
  - Pruritus [Recovered/Resolved]
  - Abdominal pain upper [Recovered/Resolved]
  - Dyspnoea [Recovered/Resolved]
  - Rash [Recovered/Resolved]
  - Pruritus [Recovered/Resolved]

NARRATIVE: CASE EVENT DATE: 20251007
